FAERS Safety Report 4907661-9 (Version None)
Quarter: 2006Q1

REPORT INFORMATION
  Report Type: 
  Country: None (occurrence: None)
  Receive Date: 20060207
  Receipt Date: 20060130
  Transmission Date: 20060701
  Serious: Yes (Hospitalization, Other)
  Sender: FDA-Public Use
  Company Number: 2006015622

PATIENT
  Age: 79 Year
  Sex: Female
  Weight: 69.4003 kg

DRUGS (20)
  1. LYRICA [Suspect]
     Indication: DIABETIC NEUROPATHY
     Dosage: 25 MG (25 MG, 1 IN 1 D) ORAL
     Route: 048
     Dates: start: 20060110, end: 20060116
  2. LIPITOR [Concomitant]
  3. LASIX [Concomitant]
  4. CLONAZEPAM [Concomitant]
  5. AMITRIPTYLINE HCL [Concomitant]
  6. AMIODARONE [Concomitant]
  7. FERROUS SULFATE TAB [Concomitant]
  8. AMBIEN [Concomitant]
  9. PROCRIT [Concomitant]
  10. ATARAX [Concomitant]
  11. PERCOCET [Concomitant]
  12. ZAROXOLYN [Concomitant]
  13. REGLAN [Concomitant]
  14. TOPROL-XL [Concomitant]
  15. CATAPRES [Concomitant]
  16. NITRO-BID OINTMENT (GLYCERYL TRINITRATE) [Concomitant]
  17. MAG-OX (MAGNESIUM OXIDE) [Concomitant]
  18. HUMULIN N [Concomitant]
  19. NEXIUM [Concomitant]
  20. APRESOLINE [Concomitant]

REACTIONS (1)
  - HEPATITIS [None]
